FAERS Safety Report 10910289 (Version 1)
Quarter: 2015Q1

REPORT INFORMATION
  Report Type: Spontaneous
  Country: US (occurrence: US)
  Receive Date: 20150312
  Receipt Date: 20150312
  Transmission Date: 20150721
  Serious: No
  Sender: FDA-Public Use
  Company Number: US-SA-2014SA154565

PATIENT
  Age: 59 Year
  Sex: Female
  Weight: 137 kg

DRUGS (1)
  1. NASACORT AQ [Suspect]
     Active Substance: TRIAMCINOLONE ACETONIDE
     Indication: HYPERSENSITIVITY
     Route: 065
     Dates: start: 20141010

REACTIONS (3)
  - Drug ineffective [Unknown]
  - Skin mass [Unknown]
  - Feeling hot [Unknown]
